FAERS Safety Report 6302529-8 (Version None)
Quarter: 2009Q3

REPORT INFORMATION
  Report Type: 
  Country: None (occurrence: None)
  Receive Date: 20090810
  Receipt Date: 20090731
  Transmission Date: 20100115
  Serious: No
  Sender: FDA-Public Use
  Company Number: CH-BAYER-200921645GPV

PATIENT
  Age: 0 Hour
  Sex: Female

DRUGS (1)
  1. YASMIN [Suspect]
     Indication: CONTRACEPTION
     Route: 064
     Dates: start: 20080701, end: 20081001

REACTIONS (2)
  - LIP SWELLING [None]
  - NASAL OEDEMA [None]
